FAERS Safety Report 18735846 (Version 1)
Quarter: 2021Q1

REPORT INFORMATION
  Report Type: Spontaneous
  Country: FR (occurrence: FR)
  Receive Date: 20210113
  Receipt Date: 20210113
  Transmission Date: 20210419
  Serious: Yes (Hospitalization)
  Sender: FDA-Public Use
  Company Number: FR-PFIZER INC-2021011881

PATIENT
  Age: 60 Year
  Sex: Female

DRUGS (1)
  1. OXALIPLATIN. [Suspect]
     Active Substance: OXALIPLATIN
     Indication: COLON CANCER
     Dosage: 132 MG, CYCLIC
     Route: 042
     Dates: start: 20200924, end: 20200924

REACTIONS (1)
  - Medical device site extravasation [Recovered/Resolved]

NARRATIVE: CASE EVENT DATE: 20200924
